FAERS Safety Report 9491611 (Version 1)
Quarter: 2013Q1

REPORT INFORMATION
  Report Type: Not Available
  Country: US (occurrence: US)
  Receive Date: 20121219
  Receipt Date: 20121219
  Transmission Date: 20140127
  Serious: No
  Sender: FDA-Public Use
  Company Number: US-LUNDBECK-DKLU1083741

PATIENT
  Sex: Male

DRUGS (1)
  1. ONFI [Suspect]
     Indication: EPILEPSY

REACTIONS (1)
  - Somnolence [Unknown]
